FAERS Safety Report 21181514 (Version 3)
Quarter: 2024Q3

REPORT INFORMATION
  Report Type: Spontaneous
  Country: US (occurrence: US)
  Receive Date: 20220806
  Receipt Date: 20240923
  Transmission Date: 20241016
  Serious: No
  Sender: SANOFI AVENTIS
  Company Number: US-SA-SAC20220729001624

PATIENT
  Age: 61 Year
  Sex: Female

DRUGS (2)
  1. DUPIXENT [Suspect]
     Active Substance: DUPILUMAB
     Indication: Asthma
     Dosage: 300 MG, QOW
     Route: 058
  2. DUPIXENT [Suspect]
     Active Substance: DUPILUMAB
     Dosage: 300 MG, QOW
     Route: 058

REACTIONS (11)
  - Weight increased [Unknown]
  - Arthritis [Unknown]
  - Fibromyalgia [Unknown]
  - Fall [Unknown]
  - Accident [Unknown]
  - Joint injury [Unknown]
  - Localised infection [Unknown]
  - Burning sensation [Unknown]
  - Peripheral swelling [Unknown]
  - Injection site pain [Unknown]
  - Product preparation error [Unknown]
